FAERS Safety Report 22383101 (Version 1)
Quarter: 2023Q2

REPORT INFORMATION
  Report Type: Spontaneous
  Country: JP (occurrence: JP)
  Receive Date: 20230530
  Receipt Date: 20230530
  Transmission Date: 20230721
  Serious: Yes (Hospitalization)
  Sender: FDA-Public Use
  Company Number: JP-Vifor (International) Inc.-VIT-2023-03873

PATIENT
  Age: 80 Year
  Sex: Male

DRUGS (2)
  1. VELPHORO [Suspect]
     Active Substance: SUCROFERRIC OXYHYDROXIDE
     Indication: Product used for unknown indication
     Dosage: DRUG START ON AN UNSPECIFIED DATE.
     Route: 048
     Dates: end: 20230509
  2. VELPHORO [Suspect]
     Active Substance: SUCROFERRIC OXYHYDROXIDE
     Dosage: IMMEDIATELY AFTER MEALS
     Route: 048
     Dates: start: 20230521

REACTIONS (2)
  - Blood glucose increased [Unknown]
  - Off label use [Unknown]

NARRATIVE: CASE EVENT DATE: 20230509
